FAERS Safety Report 4317598-4 (Version None)
Quarter: 2004Q1

REPORT INFORMATION
  Report Type: 
  Country: None (occurrence: None)
  Receive Date: 20040305
  Receipt Date: 20040202
  Transmission Date: 20041129
  Serious: Yes (Hospitalization, Other)
  Sender: FDA-Public Use
  Company Number: US-SHR-03-018402

PATIENT
  Age: 61 Year
  Sex: Male
  Weight: 81.4 kg

DRUGS (10)
  1. CAMPATH [Suspect]
     Indication: LYMPHOMA
     Dosage: 3/10 MG; 30 MG; 30 MG, 3X/WEEK SUBCUTANEOUS
     Route: 058
     Dates: start: 20031124, end: 20031126
  2. CAMPATH [Suspect]
     Indication: WALDENSTROM'S MACROGLOBULINAEMIA
     Dosage: 3/10 MG; 30 MG; 30 MG, 3X/WEEK SUBCUTANEOUS
     Route: 058
     Dates: start: 20031124, end: 20031126
  3. CAMPATH [Suspect]
     Indication: LYMPHOMA
     Dosage: 3/10 MG; 30 MG; 30 MG, 3X/WEEK SUBCUTANEOUS
     Route: 058
     Dates: start: 20031127, end: 20031207
  4. CAMPATH [Suspect]
     Indication: WALDENSTROM'S MACROGLOBULINAEMIA
     Dosage: 3/10 MG; 30 MG; 30 MG, 3X/WEEK SUBCUTANEOUS
     Route: 058
     Dates: start: 20031127, end: 20031207
  5. CAMPATH [Suspect]
     Indication: LYMPHOMA
     Dosage: 3/10 MG; 30 MG; 30 MG, 3X/WEEK SUBCUTANEOUS
     Route: 058
     Dates: start: 20031211, end: 20040108
  6. CAMPATH [Suspect]
     Indication: WALDENSTROM'S MACROGLOBULINAEMIA
     Dosage: 3/10 MG; 30 MG; 30 MG, 3X/WEEK SUBCUTANEOUS
     Route: 058
     Dates: start: 20031211, end: 20040108
  7. TYLENOL (CAPLET) [Concomitant]
  8. BENADRYL (AMMONIUM CHLORIDE, DIPHENHYDRAMINE HYDROCHLORIDE, METHOL) [Concomitant]
  9. BACTRIM DS [Concomitant]
  10. FAMVIR [Concomitant]

REACTIONS (2)
  - NEUTROPHIL COUNT DECREASED [None]
  - PYREXIA [None]
